FAERS Safety Report 7408365-3 (Version None)
Quarter: 2011Q2

REPORT INFORMATION
  Report Type: 
  Country: None (occurrence: None)
  Receive Date: 20110412
  Receipt Date: 20110404
  Transmission Date: 20111010
  Serious: Yes (Hospitalization)
  Sender: FDA-Public Use
  Company Number: US-JNJFOC-20110403165

PATIENT
  Sex: Male
  Weight: 129.8 kg

DRUGS (2)
  1. ROCEPHIN [Suspect]
     Indication: PNEUMONIA
     Route: 042
  2. LEVAQUIN [Suspect]
     Indication: PNEUMONIA
     Route: 048

REACTIONS (1)
  - TACHYARRHYTHMIA [None]
